FAERS Safety Report 15322090 (Version 1)
Quarter: 2018Q3

REPORT INFORMATION
  Report Type: Spontaneous
  Country: US (occurrence: US)
  Receive Date: 20180821
  Receipt Date: 20180821
  Transmission Date: 20181010
  Serious: Yes (Hospitalization)
  Sender: FDA-Public Use
  Company Number: None

PATIENT
  Age: 61 Year
  Sex: Female
  Weight: 58.06 kg

DRUGS (4)
  1. VALSARTAN 320MG TAB [Suspect]
     Active Substance: VALSARTAN
     Indication: HYPERTENSION
     Dosage: ?          QUANTITY:1 DF DOSAGE FORM;?
     Route: 048
     Dates: end: 20180729
  2. FISH OIL [Concomitant]
     Active Substance: FISH OIL
  3. MULTIVITAMIN [Concomitant]
     Active Substance: VITAMINS
  4. CALCIUM [Concomitant]
     Active Substance: CALCIUM

REACTIONS (11)
  - Nausea [None]
  - Immune system disorder [None]
  - Heart rate increased [None]
  - Weight decreased [None]
  - Dehydration [None]
  - Head discomfort [None]
  - Loss of personal independence in daily activities [None]
  - Dyspnoea [None]
  - Headache [None]
  - Anxiety [None]
  - Muscular weakness [None]
